FAERS Safety Report 6265098-7 (Version None)
Quarter: 2009Q3

REPORT INFORMATION
  Report Type: 
  Country: None (occurrence: None)
  Receive Date: 20090713
  Receipt Date: 20090702
  Transmission Date: 20100115
  Serious: Yes (Other)
  Sender: FDA-Public Use
  Company Number: US-PFIZER INC-2009236180

PATIENT
  Sex: Male

DRUGS (1)
  1. CELEBREX [Suspect]

REACTIONS (1)
  - RETINAL DISORDER [None]
